FAERS Safety Report 5917383-3 (Version None)
Quarter: 2008Q4

REPORT INFORMATION
  Report Type: 
  Country: None (occurrence: None)
  Receive Date: 20081014
  Receipt Date: 20081003
  Transmission Date: 20090506
  Serious: Yes (Death, Hospitalization)
  Sender: FDA-Public Use
  Company Number: A0749326A

PATIENT
  Age: 68 Year
  Sex: Male

DRUGS (17)
  1. AVANDIA [Suspect]
     Indication: DIABETES MELLITUS
     Dosage: 4MG TWICE PER DAY
     Route: 048
     Dates: start: 20070101, end: 20070601
  2. FUROSEMIDE [Concomitant]
  3. ALDACTONE [Concomitant]
  4. ADVAIR DISKUS 100/50 [Concomitant]
     Dosage: 1PUFF TWICE PER DAY
     Route: 055
  5. COMBIVENT [Concomitant]
     Route: 055
  6. ALBUTEROL [Concomitant]
  7. AMITRIPTYLINE HCL [Concomitant]
     Dosage: 25MG AT NIGHT
  8. ASPIRIN [Concomitant]
     Dosage: 325MG PER DAY
  9. LIPITOR [Concomitant]
     Dosage: 40MG PER DAY
  10. COREG [Concomitant]
     Dosage: 6.25MG TWICE PER DAY
  11. PLAVIX [Concomitant]
     Dosage: 75MG PER DAY
  12. LASIX [Concomitant]
     Dosage: 40MG PER DAY
  13. POTASSIUM CHLORIDE [Concomitant]
     Dosage: 20MEQ PER DAY
  14. NICOTINE [Concomitant]
  15. LEVAQUIN [Concomitant]
  16. GLYBURIDE [Concomitant]
     Dosage: 5MG PER DAY
  17. PREDNISONE [Concomitant]
     Dosage: 2MG PER DAY

REACTIONS (4)
  - CARDIAC FAILURE CONGESTIVE [None]
  - CHRONIC OBSTRUCTIVE PULMONARY DISEASE [None]
  - ISCHAEMIC CARDIOMYOPATHY [None]
  - RESPIRATORY FAILURE [None]
